FAERS Safety Report 8533143-1 (Version None)
Quarter: 2012Q3

REPORT INFORMATION
  Report Type: 
  Country: None (occurrence: None)
  Receive Date: 20120724
  Receipt Date: 20120713
  Transmission Date: 20120928
  Serious: Yes (Other)
  Sender: FDA-Public Use
  Company Number: JP-VERTEX PHARMACEUTICALS INC.-AE-2012-003085

PATIENT
  Age: 45 Year
  Sex: Male

DRUGS (18)
  1. REBETOL [Concomitant]
     Route: 048
     Dates: start: 20120313, end: 20120506
  2. CLARITIN REDITABS [Concomitant]
     Route: 048
  3. SINGULAIR [Concomitant]
     Route: 048
  4. PEG-INTRON [Concomitant]
     Indication: HEPATITIS C
     Route: 058
     Dates: start: 20120110, end: 20120130
  5. PEG-INTRON [Concomitant]
     Route: 058
  6. FEROTYM [Concomitant]
     Route: 048
  7. TELAVIC (TELAPREVIR) [Suspect]
     Route: 048
     Dates: start: 20120116
  8. REBETOL [Concomitant]
     Route: 048
     Dates: start: 20120521, end: 20120618
  9. PEG-INTRON [Concomitant]
     Route: 058
     Dates: start: 20120206
  10. PEG-INTRON [Concomitant]
     Route: 058
     Dates: end: 20120618
  11. REBETOL [Concomitant]
     Route: 048
     Dates: start: 20120213, end: 20120312
  12. ALENAPION [Concomitant]
     Route: 048
  13. TELAVIC (TELAPREVIR) [Suspect]
     Indication: HEPATITIS C
     Route: 048
     Dates: start: 20120110, end: 20120113
  14. REBETOL [Concomitant]
     Indication: HEPATITIS C
     Route: 048
     Dates: start: 20120110, end: 20120212
  15. REBETOL [Concomitant]
     Route: 048
     Dates: start: 20120507, end: 20120520
  16. LIVALO [Concomitant]
     Route: 048
     Dates: end: 20120113
  17. LIVALO [Concomitant]
     Route: 048
     Dates: start: 20120402
  18. EPADEL S [Concomitant]
     Route: 048

REACTIONS (4)
  - RASH [None]
  - ANAEMIA [None]
  - PLATELET COUNT DECREASED [None]
  - RENAL DISORDER [None]
